FAERS Safety Report 19374893 (Version 3)
Quarter: 2021Q2

REPORT INFORMATION
  Report Type: Spontaneous
  Country: US (occurrence: US)
  Receive Date: 20210604
  Receipt Date: 20210628
  Transmission Date: 20210717
  Serious: No
  Sender: FDA-Public Use
  Company Number: US-GLAXOSMITHKLINE-US2021AMR119813

PATIENT
  Sex: Female

DRUGS (3)
  1. ZEJULA [Suspect]
     Active Substance: NIRAPARIB
     Dosage: 200 MG, QD
     Route: 065
  2. ZEJULA [Suspect]
     Active Substance: NIRAPARIB
     Dosage: 300 MG, QD
  3. ZEJULA [Suspect]
     Active Substance: NIRAPARIB
     Indication: OVARIAN CANCER
     Dosage: 300 MG, QD
     Route: 065
     Dates: start: 20210521

REACTIONS (11)
  - White blood cell count decreased [Unknown]
  - Neck pain [Unknown]
  - Fatigue [Unknown]
  - Rash [Unknown]
  - Red blood cell count decreased [Not Recovered/Not Resolved]
  - Pain [Unknown]
  - Platelet count decreased [Unknown]
  - Insomnia [Unknown]
  - Myalgia [Not Recovered/Not Resolved]
  - Nausea [Unknown]
  - Neutrophil count decreased [Not Recovered/Not Resolved]
